FAERS Safety Report 21207267 (Version 1)
Quarter: 2022Q3

REPORT INFORMATION
  Report Type: Spontaneous
  Country: FR (occurrence: FR)
  Receive Date: 20220812
  Receipt Date: 20220812
  Transmission Date: 20221027
  Serious: Yes (Life-Threatening, Hospitalization)
  Sender: FDA-Public Use
  Company Number: None

PATIENT
  Age: 43 Year
  Sex: Female
  Weight: 68 kg

DRUGS (2)
  1. PACLITAXEL [Suspect]
     Active Substance: PACLITAXEL
     Indication: Lung adenocarcinoma stage IV
     Dosage: UNIT DOSE : 80MG/M2, , FREQUENCY TIME : 7 DAYS, DURATION :98 DAYS
     Route: 065
     Dates: start: 20220408, end: 20220715
  2. AVASTIN [Suspect]
     Active Substance: BEVACIZUMAB
     Indication: Lung adenocarcinoma stage IV
     Dosage: UNIT DOSE : 10MG/KG,STRENGTH  :25 MG/ML, FREQUENCY TIME : 15 DAYS, DURATION :77 DAYS
     Dates: start: 20220408, end: 20220624

REACTIONS (1)
  - Subarachnoid haemorrhage [Not Recovered/Not Resolved]

NARRATIVE: CASE EVENT DATE: 20220722
